FAERS Safety Report 10431371 (Version 2)
Quarter: 2014Q3

REPORT INFORMATION
  Report Type: Spontaneous
  Country: US (occurrence: US)
  Receive Date: 20140904
  Receipt Date: 20140904
  Transmission Date: 20150326
  Serious: Yes (Other)
  Sender: FDA-Public Use
  Company Number: US-GLAXOSMITHKLINE-A0696645A

PATIENT
  Sex: Female
  Weight: 81.8 kg

DRUGS (3)
  1. MULTIVITAMIN [Concomitant]
     Active Substance: VITAMINS
  2. AVANDIA [Suspect]
     Active Substance: ROSIGLITAZONE MALEATE
     Indication: TYPE 2 DIABETES MELLITUS
     Dosage: 8MG PER DAY
     Route: 048
     Dates: start: 20050606, end: 20060728
  3. LIPITOR [Concomitant]
     Active Substance: ATORVASTATIN CALCIUM
     Dates: start: 20050830

REACTIONS (4)
  - Cardiomyopathy [Unknown]
  - Cardiac disorder [Unknown]
  - Atrial fibrillation [Unknown]
  - Cardiac failure congestive [Not Recovered/Not Resolved]
